FAERS Safety Report 10551846 (Version 2)
Quarter: 2014Q4

REPORT INFORMATION
  Report Type: Report from Study
  Country: US (occurrence: US)
  Receive Date: 20141029
  Receipt Date: 20141212
  Transmission Date: 20150529
  Serious: Yes (Hospitalization, Other)
  Sender: FDA-Public Use
  Company Number: US-ABBVIE-14P-163-1299161-00

PATIENT
  Age: 38 Year
  Sex: Male
  Weight: 85.81 kg

DRUGS (16)
  1. ETODOLAC. [Concomitant]
     Active Substance: ETODOLAC
     Indication: ANKYLOSING SPONDYLITIS
     Route: 048
     Dates: start: 20141029
  2. ZYPREXA [Concomitant]
     Active Substance: OLANZAPINE
  3. LITHIUM [Concomitant]
     Active Substance: LITHIUM CARBONATE
     Indication: BIPOLAR DISORDER
  4. LITHIUM [Concomitant]
     Active Substance: LITHIUM CARBONATE
  5. OXYMORPHONE [Concomitant]
     Active Substance: OXYMORPHONE
  6. HUMIRA [Suspect]
     Active Substance: ADALIMUMAB
     Indication: ANKYLOSING SPONDYLITIS
     Route: 058
     Dates: start: 20130918, end: 20140913
  7. HUMIRA [Suspect]
     Active Substance: ADALIMUMAB
     Route: 058
     Dates: start: 2014
  8. ZOLPIDEM [Concomitant]
     Active Substance: ZOLPIDEM\ZOLPIDEM TARTRATE
     Indication: BIPOLAR DISORDER
  9. METHADONE [Concomitant]
     Active Substance: METHADONE HYDROCHLORIDE
  10. OXYMORPHONE [Concomitant]
     Active Substance: OXYMORPHONE
     Indication: PAIN
  11. ZYPREXA [Concomitant]
     Active Substance: OLANZAPINE
     Indication: BIPOLAR DISORDER
  12. LODINE [Concomitant]
     Active Substance: ETODOLAC
     Indication: ANKYLOSING SPONDYLITIS
  13. LODINE [Concomitant]
     Active Substance: ETODOLAC
  14. METHADONE [Concomitant]
     Active Substance: METHADONE HYDROCHLORIDE
     Indication: PAIN
  15. BACLOFEN. [Concomitant]
     Active Substance: BACLOFEN
     Indication: ANKYLOSING SPONDYLITIS
     Route: 048
     Dates: start: 20141022
  16. ZOLPIDEM [Concomitant]
     Active Substance: ZOLPIDEM\ZOLPIDEM TARTRATE

REACTIONS (1)
  - Generalised tonic-clonic seizure [Recovered/Resolved]

NARRATIVE: CASE EVENT DATE: 20140924
